FAERS Safety Report 5452103-0 (Version None)
Quarter: 2007Q3

REPORT INFORMATION
  Report Type: 
  Country: None (occurrence: None)
  Receive Date: 20070912
  Receipt Date: 20070831
  Transmission Date: 20080115
  Serious: Yes (Hospitalization, Other)
  Sender: FDA-Public Use
  Company Number: 237370K07USA

PATIENT
  Age: 33 Year
  Sex: Male
  Weight: 74.8435 kg

DRUGS (8)
  1. REBIF [Suspect]
     Indication: MULTIPLE SCLEROSIS
     Dosage: 44 MCG, 3 IN 1 WEEKS, SUBCUTANEOUS
     Route: 058
     Dates: start: 20060913, end: 20070301
  2. BACLOFEN [Concomitant]
  3. TIZANIDINE HCL [Concomitant]
  4. TRIZIVIR [Concomitant]
  5. NEURONTIN [Concomitant]
  6. OXYCONTIN [Concomitant]
  7. DURAGESIC PATCH (FENTANYL /00174601/) [Concomitant]
  8. VICODIN [Concomitant]

REACTIONS (2)
  - CONVULSION [None]
  - LOSS OF CONSCIOUSNESS [None]
